FAERS Safety Report 8601650-9 (Version None)
Quarter: 2012Q3

REPORT INFORMATION
  Report Type: 
  Country: None (occurrence: None)
  Receive Date: 20120817
  Receipt Date: 20120813
  Transmission Date: 20120928
  Serious: Yes (Other)
  Sender: FDA-Public Use
  Company Number: US-JNJFOC-20120805166

PATIENT

DRUGS (7)
  1. DOXORUBICIN HYDROCHLORIDE [Suspect]
     Indication: ACUTE LYMPHOCYTIC LEUKAEMIA
     Dosage: OVER 15-30 MINUTES ON DAY 1
     Route: 042
  2. METHOTREXATE [Suspect]
     Indication: ACUTE LYMPHOCYTIC LEUKAEMIA
     Dosage: WHO HAD NO CNS INVOLVEMENT- DAY 15;
     Route: 037
  3. DEXAMETHASONE [Suspect]
     Indication: ACUTE LYMPHOCYTIC LEUKAEMIA
     Dosage: DIVIDED INTO 2 DOSES FOR 14 CONSECUTIVE DAYS FROM DAY 1
     Route: 048
  4. PEG-ASPARAGINASE [Suspect]
     Indication: ACUTE LYMPHOCYTIC LEUKAEMIA
     Dosage: PEGYLATED 2500 UNITS/M2/DOSE GIVEN INTRAVENOUSLY AS 4 WEEKLY DOSES
     Route: 030
  5. CYTARABINE [Suspect]
     Indication: ACUTE LYMPHOCYTIC LEUKAEMIA
     Dosage: DAY 1 WITH NO CNS INVOLVEMENT + ON DAYS 8, 15 + 22 WITH CNS INVOLVEMENT
     Route: 037
  6. BORTEZOMIB [Suspect]
     Indication: ACUTE LYMPHOCYTIC LEUKAEMIA
     Dosage: PUSH ON DAYS 1, 4, 8, AND 11
     Route: 042
  7. VINCRISTINE [Suspect]
     Indication: ACUTE LYMPHOCYTIC LEUKAEMIA
     Dosage: BY PUSH (2 MG MAXIMUM DOSE) WAS ADMINISTERED INTRAVENOUSLY BY PUSH DAY 1, 8, 15, AND 22
     Route: 042

REACTIONS (3)
  - OFF LABEL USE [None]
  - BACTERIAL SEPSIS [None]
  - HYPOXIA [None]
